FAERS Safety Report 25966352 (Version 1)
Quarter: 2025Q4

REPORT INFORMATION
  Report Type: Report from Study
  Country: PK (occurrence: PK)
  Receive Date: 20251028
  Receipt Date: 20251028
  Transmission Date: 20260118
  Serious: Yes (Other)
  Sender: ROCHE
  Company Number: PK-ROCHE-10000418987

PATIENT
  Age: 50 Year
  Sex: Female

DRUGS (2)
  1. HERCEPTIN [Suspect]
     Active Substance: TRASTUZUMAB
     Indication: Breast cancer metastatic
     Dosage: PATIENT RECEIVED TOTAL 10 CYCLES TILL JULY 2025
     Route: 058
     Dates: start: 20250108
  2. HERCEPTIN [Suspect]
     Active Substance: TRASTUZUMAB
     Route: 058

REACTIONS (1)
  - Immune-mediated encephalopathy [Unknown]

NARRATIVE: CASE EVENT DATE: 20251024
